FAERS Safety Report 8088100-9 (Version None)
Quarter: 2012Q1

REPORT INFORMATION
  Report Type: 
  Country: None (occurrence: None)
  Receive Date: 20120131
  Receipt Date: 20120124
  Transmission Date: 20120608
  Serious: Yes (Other)
  Sender: FDA-Public Use
  Company Number: US-BIOGENIDEC-2011BI012262

PATIENT
  Age: 43 Year
  Sex: Female

DRUGS (1)
  1. TYSABRI [Suspect]
     Indication: MULTIPLE SCLEROSIS
     Route: 042
     Dates: start: 20090427, end: 20110217

REACTIONS (9)
  - ARTHROPATHY [None]
  - CYST [None]
  - HEADACHE [None]
  - WEIGHT INCREASED [None]
  - CEREBRAL HAEMORRHAGE [None]
  - PAIN IN EXTREMITY [None]
  - FIBROMYALGIA [None]
  - HEPATIC ENZYME INCREASED [None]
  - MULTIPLE SCLEROSIS [None]
